FAERS Safety Report 6530785-X (Version None)
Quarter: 2010Q1

REPORT INFORMATION
  Report Type: 
  Country: None (occurrence: None)
  Receive Date: 20100108
  Receipt Date: 20090217
  Transmission Date: 20100710
  Serious: No
  Sender: FDA-Public Use
  Company Number: A0769123A

PATIENT
  Age: 38 Year
  Sex: Male

DRUGS (2)
  1. LOVAZA [Suspect]
     Dosage: 2G TWICE PER DAY
     Route: 048
  2. PREVACID [Suspect]
     Indication: DRUG USE FOR UNKNOWN INDICATION
     Route: 065

REACTIONS (2)
  - DYSGEUSIA [None]
  - ERUCTATION [None]
